FAERS Safety Report 15750298 (Version 1)
Quarter: 2018Q4

REPORT INFORMATION
  Report Type: Spontaneous
  Country: US (occurrence: US)
  Receive Date: 20181205
  Receipt Date: 20181205
  Transmission Date: 20190205
  Serious: No
  Sender: FDA-Public Use
  Company Number: None

PATIENT
  Age: 61 Year
  Sex: Male
  Weight: 106.59 kg

DRUGS (1)
  1. ZOLEDRONIC ACID 5 MG/100 ML [Suspect]
     Active Substance: ZOLEDRONIC ACID
     Indication: PSORIATIC ARTHROPATHY
     Dosage: ?          OTHER FREQUENCY:EVERY YEAR;?
     Route: 042
     Dates: start: 201810

REACTIONS (2)
  - Groin pain [None]
  - Arthralgia [None]
